FAERS Safety Report 5116010-5 (Version None)
Quarter: 2006Q3

REPORT INFORMATION
  Report Type: 
  Country: None (occurrence: None)
  Receive Date: 20060927
  Receipt Date: 20060209
  Transmission Date: 20061208
  Serious: No
  Sender: FDA-Public Use
  Company Number: US-BRISTOL-MYERS SQUIBB COMPANY-13279112

PATIENT
  Age: 53 Year
  Sex: Female

DRUGS (1)
  1. DEFINITY [Suspect]
     Dosage: 3 ML PERFLUTREN SLOWLY NIXED WITH 8 ML SALINE.
     Route: 042
     Dates: start: 20060201

REACTIONS (1)
  - DYSPNOEA [None]
